FAERS Safety Report 8574396-3 (Version None)
Quarter: 2012Q3

REPORT INFORMATION
  Report Type: 
  Country: None (occurrence: None)
  Receive Date: 20120806
  Receipt Date: 20120723
  Transmission Date: 20120928
  Serious: Yes (Disabling, Other)
  Sender: FDA-Public Use
  Company Number: US-009507513-1207USA011300

PATIENT

DRUGS (20)
  1. NORVASC [Suspect]
     Route: 048
  2. DILANTIN [Suspect]
     Dosage: 300 MG, BID
     Route: 048
  3. TYLENOL W/ CODEINE [Suspect]
     Dosage: UNK, QD
  4. LANTUS [Suspect]
     Dosage: 80 IU, QAM
  5. LANTUS [Suspect]
     Dosage: 90 IU, QPM
  6. LOMOTIL [Suspect]
     Dosage: 2.5 MG, QID
     Route: 048
  7. ISOSORBIDE MONONITRATE [Suspect]
     Dosage: 30 MG, TID
  8. POTASSIUM CHLORIDE [Suspect]
     Dosage: 8 MEQ, QD
  9. DEPAKOTE [Suspect]
     Dosage: 500 MG, BID
     Route: 048
  10. METHOCARBAMOL [Suspect]
     Dosage: 750 MG, PRN
     Route: 048
  11. LACTULOSE [Suspect]
     Dosage: 30 MG, PRN
  12. ATENOLOL [Suspect]
     Dosage: 25 MG, QD
     Route: 048
  13. NITROSTAT [Suspect]
     Dosage: 0.4 MG, PRN
  14. ASPIRIN [Suspect]
     Dosage: 81 MG, PRN
  15. ATIVAN [Suspect]
     Dosage: 1 MG, TID
     Route: 048
  16. ZOCOR [Suspect]
     Dosage: 40 MG, QD
     Route: 048
  17. FUROSEMIDE [Suspect]
     Dosage: 40 MG, BID
     Route: 048
  18. HUMULIN R [Suspect]
     Dosage: 24 IU, TID
  19. ZANTAC [Suspect]
     Dosage: 300 MG, TID
  20. REMERON [Suspect]
     Dosage: 30 MG, QD
     Route: 048

REACTIONS (4)
  - BEDRIDDEN [None]
  - CHRONIC OBSTRUCTIVE PULMONARY DISEASE [None]
  - AMNESIA [None]
  - EMPHYSEMA [None]
